FAERS Safety Report 11743390 (Version 8)
Quarter: 2017Q2

REPORT INFORMATION
  Report Type: Spontaneous
  Country: JP (occurrence: JP)
  Receive Date: 20151116
  Receipt Date: 20170602
  Transmission Date: 20170829
  Serious: Yes (Other)
  Sender: FDA-Public Use
  Company Number: JP-009507513-1511JPN007906

PATIENT
  Age: 64 Year
  Sex: Male
  Weight: 68 kg

DRUGS (14)
  1. DEXAMETHASONE. [Suspect]
     Active Substance: DEXAMETHASONE
     Indication: BLADDER CANCER
     Dosage: 6.6 MG ON DAY 1 AND 8
     Route: 048
  2. GEMCITABINE [Concomitant]
     Active Substance: GEMCITABINE\GEMCITABINE HYDROCHLORIDE
     Indication: BLADDER CANCER
     Dosage: 1000 MG/M^2 ON DAYS 1 AND 8 EVERY 3 WEEKS
  3. GEMCITABINE [Concomitant]
     Active Substance: GEMCITABINE\GEMCITABINE HYDROCHLORIDE
     Dosage: 1000 MG/M^2 ON DAYS 1 AND 8 (SECOND CYCLE OF GC THERAPY ON DAY 37)
  4. GRANISETRON [Concomitant]
     Active Substance: GRANISETRON
     Dosage: 3 MG, ON DAYS 1-3 AND 8
  5. PITAVASTATIN CALCIUM [Concomitant]
     Active Substance: PITAVASTATIN CALCIUM
     Dosage: 1 MG/DAY
  6. WARFARIN [Interacting]
     Active Substance: WARFARIN
     Indication: ANTICOAGULANT THERAPY
     Dosage: 3 MG/DAY
  7. CISPLATIN. [Interacting]
     Active Substance: CISPLATIN
     Indication: BLADDER CANCER
     Dosage: 70 MG/M^2 ON DAY 1 EVERY 3 WEEKS, ; FIRST CYCLE OF GC THERAPY
  8. WARFARIN [Interacting]
     Active Substance: WARFARIN
     Dosage: 1 MG/DAY
  9. EMEND [Concomitant]
     Active Substance: APREPITANT
     Dosage: 80 MG, ONCE A DAY (DAY 2)
     Route: 048
  10. NITRAZEPAM [Concomitant]
     Active Substance: NITRAZEPAM
     Dosage: 5 MG/DAY
  11. WARFARIN [Interacting]
     Active Substance: WARFARIN
     Dosage: 1 MG/DAY
  12. EMEND [Concomitant]
     Active Substance: APREPITANT
     Indication: PROPHYLAXIS OF NAUSEA AND VOMITING
     Dosage: 125 MG, ONCE A DAY (DAY 1)
     Route: 048
  13. EMEND [Concomitant]
     Active Substance: APREPITANT
     Dosage: 80 MG, ONCE A DAY (DAY 3)
     Route: 048
  14. SENNOSIDES. [Concomitant]
     Active Substance: SENNOSIDES
     Dosage: 24 MG/DAY

REACTIONS (3)
  - Prothrombin time ratio increased [Unknown]
  - Drug interaction [Unknown]
  - Off label use [Unknown]
